FAERS Safety Report 7723929-5 (Version None)
Quarter: 2011Q3

REPORT INFORMATION
  Report Type: 
  Country: None (occurrence: None)
  Receive Date: 20110901
  Receipt Date: 20110819
  Transmission Date: 20111222
  Serious: Yes (Hospitalization, Other)
  Sender: FDA-Public Use
  Company Number: US-ELI_LILLY_AND_COMPANY-US201008001481

PATIENT
  Sex: Male

DRUGS (29)
  1. FORTEO [Suspect]
     Dosage: 20 UG, QD
     Route: 058
  2. SINGULAIR [Concomitant]
  3. VIT C [Concomitant]
  4. CALCIUM CARBONATE [Concomitant]
  5. FORTEO [Suspect]
     Dosage: 20 UG, QD
  6. NASONEX [Concomitant]
  7. VENTOLIN                                /SCH/ [Concomitant]
     Indication: DYSPNOEA
  8. CENTRUM                            /00554501/ [Concomitant]
  9. FORTEO [Suspect]
     Dosage: 20 UG, DAILY (1/D)
  10. FORTEO [Suspect]
     Dosage: 20 UG, QD
  11. GLUCOSAMINE CHONDROITIN [Concomitant]
  12. PROTONIX [Concomitant]
  13. HYTRIN [Concomitant]
  14. DILTIAZEM [Concomitant]
     Indication: HYPERTENSION
  15. NAPROSYN [Concomitant]
  16. VITAMIN D [Concomitant]
  17. B50 [Concomitant]
  18. ALLEGRA [Concomitant]
  19. FORTEO [Suspect]
     Dosage: 20 UG, DAILY (1/D)
     Route: 058
  20. FORTEO [Suspect]
     Indication: OSTEOPOROSIS
     Dosage: 20 UG, DAILY (1/D)
     Route: 058
     Dates: start: 20100610, end: 20100726
  21. FORTEO [Suspect]
     Dosage: 20 UG, QD
  22. ASPIRIN [Concomitant]
  23. PLAVIX [Concomitant]
  24. AGGRENOX [Concomitant]
  25. MULTIVITAMIN [Concomitant]
  26. METAMUCIL-2 [Concomitant]
  27. VICODIN [Concomitant]
  28. CALCIUM 500+D3 [Concomitant]
  29. PRESERVISION LUTEIN EYE VITA.+MIN.SUP.SOFTG. [Concomitant]

REACTIONS (12)
  - FEELING ABNORMAL [None]
  - DEPRESSION [None]
  - PAIN [None]
  - ARTERIAL OCCLUSIVE DISEASE [None]
  - HAEMOGLOBIN ABNORMAL [None]
  - NAIL DISORDER [None]
  - MUSCULAR WEAKNESS [None]
  - FATIGUE [None]
  - COUGH [None]
  - INCORRECT STORAGE OF DRUG [None]
  - PIGMENTATION DISORDER [None]
  - INJECTION SITE PRURITUS [None]
